FAERS Safety Report 4352742-4 (Version None)
Quarter: 2004Q2

REPORT INFORMATION
  Report Type: 
  Country: None (occurrence: None)
  Receive Date: 20040504
  Receipt Date: 20040503
  Transmission Date: 20050107
  Serious: Yes (Other)
  Sender: FDA-Public Use
  Company Number: DE-GLAXOSMITHKLINE-D0043707A

PATIENT
  Sex: Male

DRUGS (1)
  1. VALTREX [Suspect]
     Route: 048

REACTIONS (5)
  - CONVULSION [None]
  - FACIAL BONES FRACTURE [None]
  - FALL [None]
  - MENTAL DISORDER [None]
  - SYNCOPE [None]
